FAERS Safety Report 15723857 (Version 5)
Quarter: 2019Q2

REPORT INFORMATION
  Report Type: Spontaneous
  Country: JP (occurrence: JP)
  Receive Date: 20181214
  Receipt Date: 20190418
  Transmission Date: 20190711
  Serious: Yes (Hospitalization, Other)
  Sender: FDA-Public Use
  Company Number: JP-009507513-1812JPN006675

PATIENT
  Age: 72 Year
  Sex: Female
  Weight: 48.5 kg

DRUGS (8)
  1. GLACTIV [Suspect]
     Active Substance: SITAGLIPTIN
     Indication: TYPE 2 DIABETES MELLITUS
     Dosage: 50 MILLIGRAM, EVERYDAY
     Route: 048
  2. PREDONINE [Suspect]
     Active Substance: PREDNISOLONE
     Dosage: 25 MG, EVERYDAY
     Route: 048
     Dates: start: 20170306, end: 20170321
  3. METFORMIN HYDROCHLORIDE. [Concomitant]
     Active Substance: METFORMIN HYDROCHLORIDE
     Dosage: UNK
  4. GLIMEPIRIDE. [Concomitant]
     Active Substance: GLIMEPIRIDE
     Dosage: UNK
  5. BROTIZOLAM [Concomitant]
     Active Substance: BROTIZOLAM
     Dosage: UNK
  6. OPDIVO [Suspect]
     Active Substance: NIVOLUMAB
     Indication: NON-SMALL CELL LUNG CANCER RECURRENT
     Dosage: 3 MILLIGRAM/KILOGRAM, Q2W
     Route: 041
     Dates: start: 20161226, end: 20170124
  7. LANSOPRAZOLE. [Concomitant]
     Active Substance: LANSOPRAZOLE
     Dosage: UNK
  8. PREDONINE [Suspect]
     Active Substance: PREDNISOLONE
     Indication: PNEUMONITIS
     Dosage: 30 MG, EVERYDAY
     Route: 048
     Dates: start: 20170203, end: 20170305

REACTIONS (2)
  - Pneumonitis [Recovering/Resolving]
  - Hyperglycaemia [Recovering/Resolving]

NARRATIVE: CASE EVENT DATE: 2017
